FAERS Safety Report 4398637-1 (Version None)
Quarter: 2004Q3

REPORT INFORMATION
  Report Type: 
  Country: None (occurrence: None)
  Receive Date: 20040712
  Receipt Date: 20040625
  Transmission Date: 20050211
  Serious: Yes (Hospitalization)
  Sender: FDA-Public Use
  Company Number: 2004AP02354

PATIENT
  Age: 77 Year
  Sex: Male

DRUGS (6)
  1. IRESSA [Suspect]
     Indication: LUNG SQUAMOUS CELL CARCINOMA STAGE IV
     Dosage: 250 MG DAILY PO
     Route: 048
     Dates: start: 20040412, end: 20040426
  2. EXCELASE [Concomitant]
  3. BUP-4 [Concomitant]
  4. PURSENNID [Concomitant]
  5. CARBOPLATIN [Concomitant]
  6. PACLITAXEL [Concomitant]

REACTIONS (5)
  - DERMATITIS BULLOUS [None]
  - PNEUMOTHORAX [None]
  - PO2 DECREASED [None]
  - PRURITUS [None]
  - PULMONARY ALVEOLAR HAEMORRHAGE [None]
